FAERS Safety Report 4989833-0 (Version None)
Quarter: 2006Q2

REPORT INFORMATION
  Report Type: 
  Country: None (occurrence: None)
  Receive Date: 20060503
  Receipt Date: 20060315
  Transmission Date: 20061013
  Serious: Yes (Hospitalization)
  Sender: FDA-Public Use
  Company Number: FR-ABBOTT-06P-056-0328354-00

PATIENT
  Age: 56 Year
  Sex: Female
  Weight: 69 kg

DRUGS (7)
  1. KALETRA [Suspect]
     Indication: DRUG USE FOR UNKNOWN INDICATION
     Dates: start: 20050728, end: 20051027
  2. DIDANOSINE [Suspect]
     Indication: DRUG USE FOR UNKNOWN INDICATION
     Route: 048
     Dates: start: 20050728, end: 20051027
  3. ABACAVIR [Suspect]
     Indication: DRUG USE FOR UNKNOWN INDICATION
     Route: 048
     Dates: start: 20050728, end: 20051027
  4. HALOPERIDOL [Concomitant]
     Indication: SCHIZOPHRENIA, PARANOID TYPE
  5. BENFLUOREX [Concomitant]
     Indication: DRUG USE FOR UNKNOWN INDICATION
  6. PRAVASTATIN [Concomitant]
     Indication: DRUG USE FOR UNKNOWN INDICATION
  7. ABACAVIR [Concomitant]
     Dates: start: 20050728

REACTIONS (3)
  - DELIRIUM [None]
  - HALLUCINATION [None]
  - MENTAL DISORDER [None]
